FAERS Safety Report 4916823-6 (Version None)
Quarter: 2006Q1

REPORT INFORMATION
  Report Type: 
  Country: None (occurrence: None)
  Receive Date: 20060216
  Receipt Date: 20060216
  Transmission Date: 20060701
  Serious: No
  Sender: FDA-Public Use
  Company Number: None

PATIENT
  Age: 51 Year
  Sex: Female
  Weight: 44.9061 kg

DRUGS (1)
  1. LEVAQUIN [Suspect]
     Indication: DENTAL CARE
     Dosage: 500MG ONCE DAILY ORALLY
     Route: 048
     Dates: start: 20040701

REACTIONS (4)
  - DEPRESSION [None]
  - DRUG INEFFECTIVE [None]
  - GLOSSODYNIA [None]
  - ORAL DISCOMFORT [None]
